FAERS Safety Report 5853009-5 (Version None)
Quarter: 2008Q3

REPORT INFORMATION
  Report Type: 
  Country: None (occurrence: None)
  Receive Date: 20080814
  Receipt Date: 20080417
  Transmission Date: 20090109
  Serious: No
  Sender: FDA-Public Use
  Company Number: WAES 0804USA03858

PATIENT
  Sex: Male

DRUGS (4)
  1. ISENTRESS [Suspect]
     Indication: HIV INFECTION
     Dosage: 400 MG/BID/PO
     Route: 048
     Dates: start: 20071129, end: 20080312
  2. EPZICOM [Concomitant]
  3. PROZAC [Concomitant]
  4. SUSTIVA [Concomitant]

REACTIONS (1)
  - DEPRESSION [None]
